FAERS Safety Report 5907651-3 (Version None)
Quarter: 2008Q4

REPORT INFORMATION
  Report Type: 
  Country: None (occurrence: None)
  Receive Date: 20081002
  Receipt Date: 20081002
  Transmission Date: 20090506
  Serious: No
  Sender: FDA-Public Use
  Company Number: None

PATIENT
  Age: 72 Year
  Sex: Male
  Weight: 89.8 kg

DRUGS (4)
  1. PREGABALIN [Suspect]
     Indication: NEURALGIA
     Dosage: 75 MG BID PO; 500 MG BID PO
     Route: 048
     Dates: start: 20080915, end: 20080924
  2. PREGABALIN [Suspect]
     Indication: URINARY TRACT INFECTION
     Dosage: 75 MG BID PO; 500 MG BID PO
     Route: 048
     Dates: start: 20080915, end: 20080924
  3. PREGABALIN [Suspect]
     Indication: NEURALGIA
     Dosage: 75 MG BID PO; 500 MG BID PO
     Route: 048
     Dates: start: 20080922
  4. PREGABALIN [Suspect]
     Indication: URINARY TRACT INFECTION
     Dosage: 75 MG BID PO; 500 MG BID PO
     Route: 048
     Dates: start: 20080922

REACTIONS (4)
  - ABDOMINAL PAIN [None]
  - HEADACHE [None]
  - PRURITUS [None]
  - RASH [None]
